FAERS Safety Report 21475570 (Version 3)
Quarter: 2022Q4

REPORT INFORMATION
  Report Type: Spontaneous
  Country: US (occurrence: US)
  Receive Date: 20221019
  Receipt Date: 20221213
  Transmission Date: 20230112
  Serious: Yes (Hospitalization)
  Sender: FDA-Public Use
  Company Number: US-BRISTOL-MYERS SQUIBB COMPANY-2022-122630

PATIENT
  Age: 75 Year
  Sex: Male

DRUGS (2)
  1. POMALYST [Suspect]
     Active Substance: POMALIDOMIDE
     Indication: Embolism
     Dosage: TAKE 1 CAPSULE BY MOUTH DAILY ON DAYS 1-21, EVERY 28 DAY CYCLE
     Route: 048
     Dates: start: 20220808, end: 20221105
  2. POMALYST [Suspect]
     Active Substance: POMALIDOMIDE
     Indication: Deep vein thrombosis
     Dosage: TAKE 1 CAPSULE BY MOUTH DAILY ON DAYS 1-21, EVERY 28 DAY CYCLE
     Route: 048
     Dates: start: 20221201

REACTIONS (4)
  - Dyspnoea [Recovered/Resolved]
  - Constipation [Not Recovered/Not Resolved]
  - Cardiac disorder [Recovered/Resolved]
  - Off label use [Unknown]
